FAERS Safety Report 12692835 (Version 1)
Quarter: 2016Q3

REPORT INFORMATION
  Report Type: Spontaneous
  Country: US (occurrence: US)
  Receive Date: 20160829
  Receipt Date: 20160829
  Transmission Date: 20161109
  Serious: No
  Sender: FDA-Public Use
  Company Number: US-AJANTA PHARMA USA INC.-1056818

PATIENT
  Age: 20 Year
  Sex: Male
  Weight: 82 kg

DRUGS (12)
  1. DIAZEPAM. [Concomitant]
     Active Substance: DIAZEPAM
  2. PROTONIX [Concomitant]
     Active Substance: PANTOPRAZOLE SODIUM
  3. POLYETHYLENE GLYCOL 3350. [Concomitant]
     Active Substance: POLYETHYLENE GLYCOL 3350
  4. AMBIEN [Concomitant]
     Active Substance: ZOLPIDEM TARTRATE
  5. RISPERIDONE. [Suspect]
     Active Substance: RISPERIDONE
     Indication: AGGRESSION
     Route: 048
     Dates: start: 20150923
  6. KEPPRA [Concomitant]
     Active Substance: LEVETIRACETAM
  7. RANITIDINE. [Concomitant]
     Active Substance: RANITIDINE
  8. LIBRAX [Concomitant]
     Active Substance: CHLORDIAZEPOXIDE HYDROCHLORIDE\CLIDINIUM BROMIDE
  9. OMEGA 3 [Concomitant]
     Active Substance: OMEGA-3 FATTY ACIDS
  10. ZONEGRAN [Concomitant]
     Active Substance: ZONISAMIDE
  11. VITAMIN B6 [Concomitant]
     Active Substance: PYRIDOXINE HYDROCHLORIDE
  12. VITAMIN D3 [Concomitant]
     Active Substance: CHOLECALCIFEROL

REACTIONS (5)
  - Off label use [Unknown]
  - Decreased interest [Recovering/Resolving]
  - Weight decreased [Unknown]
  - Product substitution issue [Recovering/Resolving]
  - Dyskinesia [Recovering/Resolving]
